FAERS Safety Report 16342800 (Version 2)
Quarter: 2020Q1

REPORT INFORMATION
  Report Type: Report from Study
  Country: NL (occurrence: NL)
  Receive Date: 20190522
  Receipt Date: 20200323
  Transmission Date: 20200409
  Serious: Yes (Other)
  Sender: FDA-Public Use
  Company Number: NL-MYLANLABS-2019M1046996

PATIENT
  Age: 26 Year
  Sex: Female
  Weight: 95 kg

DRUGS (8)
  1. RIFAMPICINE [Concomitant]
     Active Substance: RIFAMPIN
     Dosage: 600 MILLIGRAM, QD
  2. THIOSIX [Suspect]
     Active Substance: THIOGUANINE ANHYDROUS
     Indication: INFLAMMATORY BOWEL DISEASE
     Dosage: 20 MILLIGRAM DAILY;
     Route: 065
     Dates: start: 20170223
  3. INFLECTRA                          /01445601/ [Concomitant]
     Active Substance: INFLIXIMAB
     Dosage: 500 MILLIGRAM 8 WEEK
     Route: 042
  4. PARACETAMOL [Concomitant]
     Active Substance: ACETAMINOPHEN
     Dosage: UNK, PRN
  5. PYRIDOXINE [Concomitant]
     Active Substance: PYRIDOXINE
     Dosage: 20 MILLIGRAM, QD
  6. VENTOLIN [Concomitant]
     Active Substance: ALBUTEROL SULFATE
     Dosage: IF NECESSARY (INHALATION POWDER 200MCG 60DO)
     Route: 065
  7. SERETIDE [Concomitant]
     Active Substance: FLUTICASONE PROPIONATE\SALMETEROL XINAFOATE
     Dosage: 2 DOSAGE FORM, QD
  8. ETHINYLESTRADIOL/LEVONORGESTREL [Suspect]
     Active Substance: ETHINYL ESTRADIOL\LEVONORGESTREL
     Indication: PRODUCT USED FOR UNKNOWN INDICATION
     Dosage: 3 WEEKS 1X DAILY 1 FOLLOWED BY A CESSATION WEEK
     Route: 065

REACTIONS (4)
  - Liver disorder [Unknown]
  - Gamma-glutamyltransferase increased [Recovered/Resolved]
  - Hepatotoxicity [Recovered/Resolved]
  - Overweight [Recovered/Resolved]

NARRATIVE: CASE EVENT DATE: 20180802
